FAERS Safety Report 23944531 (Version 1)
Quarter: 2024Q2

REPORT INFORMATION
  Report Type: Spontaneous
  Country: FR (occurrence: FR)
  Receive Date: 20240606
  Receipt Date: 20240606
  Transmission Date: 20240716
  Serious: Yes (Other)
  Sender: FDA-Public Use
  Company Number: FR-SUN PHARMACEUTICAL INDUSTRIES LTD-2024RR-450261

PATIENT
  Age: 74 Year
  Sex: Male

DRUGS (4)
  1. SERTRALINE [Suspect]
     Active Substance: SERTRALINE HYDROCHLORIDE
     Indication: Depression
     Dosage: 1 CP MORNING
     Route: 048
     Dates: start: 20230703
  2. SINEMET [Suspect]
     Active Substance: CARBIDOPA\LEVODOPA
     Indication: Parkinson^s disease
     Dosage: 100 MG/10MG ; 1 COMPRIM? ? 11H, 14H, 18H
     Route: 048
     Dates: start: 2023
  3. DUTASTERIDE [Suspect]
     Active Substance: DUTASTERIDE
     Indication: Benign prostatic hyperplasia
     Dosage: 0.5MG, 1 CAPSULE IN THE MORNING
     Route: 048
     Dates: start: 20210202
  4. RIVASTIGMINE [Suspect]
     Active Substance: RIVASTIGMINE
     Indication: Dementia with Lewy bodies
     Dosage: 4.6 MILLIGRAM, DAILY
     Route: 048
     Dates: start: 20230201

REACTIONS (1)
  - Depression [Not Recovered/Not Resolved]
